FAERS Safety Report 6559017-3 (Version None)
Quarter: 2010Q1

REPORT INFORMATION
  Report Type: 
  Country: None (occurrence: None)
  Receive Date: 20100129
  Receipt Date: 20100115
  Transmission Date: 20100710
  Serious: Yes (Other)
  Sender: FDA-Public Use
  Company Number: US-RB-021610-09

PATIENT
  Age: 33 Year
  Sex: Female

DRUGS (1)
  1. SUBOXONE [Suspect]
     Indication: DRUG USE FOR UNKNOWN INDICATION
     Dosage: DOSING DETAILS UNKNOWN
     Route: 065

REACTIONS (15)
  - ABNORMAL DREAMS [None]
  - ANXIETY [None]
  - BACK PAIN [None]
  - BIPOLAR DISORDER [None]
  - CONSTIPATION [None]
  - DEPRESSION [None]
  - DIZZINESS [None]
  - DYSPEPSIA [None]
  - FRUSTRATION [None]
  - HEADACHE [None]
  - IRRITABILITY [None]
  - NICOTINE DEPENDENCE [None]
  - NIGHTMARE [None]
  - OVARIAN CYST [None]
  - VERTEBRAL COLUMN MASS [None]
